FAERS Safety Report 5454026-X (Version None)
Quarter: 2007Q3

REPORT INFORMATION
  Report Type: 
  Country: None (occurrence: None)
  Receive Date: 20070917
  Receipt Date: 20070709
  Transmission Date: 20080115
  Serious: Yes (Other)
  Sender: FDA-Public Use
  Company Number: US-ASTRAZENECA-2006UW04646

PATIENT
  Age: 491 Month
  Sex: Female
  Weight: 89.5 kg

DRUGS (2)
  1. SEROQUEL [Suspect]
     Indication: ANXIETY
     Dosage: 25 TO 100 MG
     Route: 048
     Dates: start: 20030701, end: 20050601
  2. SEROQUEL [Suspect]
     Indication: DEPRESSION
     Dosage: 25 TO 100 MG
     Route: 048
     Dates: start: 20030701, end: 20050601

REACTIONS (2)
  - CHEST PAIN [None]
  - PANCREATITIS [None]
